FAERS Safety Report 5027085-6 (Version None)
Quarter: 2006Q2

REPORT INFORMATION
  Report Type: 
  Country: None (occurrence: None)
  Receive Date: 20060615
  Receipt Date: 20060612
  Transmission Date: 20061013
  Serious: Yes (Other)
  Sender: FDA-Public Use
  Company Number: US-GLAXOSMITHKLINE-A0608603A

PATIENT
  Sex: Female

DRUGS (1)
  1. DEBROX DROPS [Suspect]
     Indication: DRUG USE FOR UNKNOWN INDICATION
     Route: 047
     Dates: start: 20060610, end: 20060610

REACTIONS (5)
  - ACCIDENTAL EXPOSURE [None]
  - DRUG ADMINISTRATION ERROR [None]
  - OCULAR HYPERAEMIA [None]
  - VISION BLURRED [None]
  - VISUAL ACUITY REDUCED [None]
